FAERS Safety Report 7826689-2 (Version None)
Quarter: 2011Q4

REPORT INFORMATION
  Report Type: 
  Country: None (occurrence: None)
  Receive Date: 20111020
  Receipt Date: 20111005
  Transmission Date: 20120403
  Serious: Yes (Hospitalization)
  Sender: FDA-Public Use
  Company Number: US-BAYER-2011-050467

PATIENT
  Age: 43 Year
  Sex: Female
  Weight: 90.703 kg

DRUGS (17)
  1. LOVAZA [Concomitant]
     Dosage: 200 MG, TID
     Route: 048
  2. BUSPAR [Concomitant]
     Dosage: 10 MG, BID
     Route: 048
  3. YAZ [Suspect]
     Indication: PREMENSTRUAL SYNDROME
     Dosage: UNK
     Dates: start: 20070101, end: 20070101
  4. ASCORBIC ACID [Concomitant]
     Dosage: 1000 MG, QD
     Route: 048
  5. DIOVAN HCT [Concomitant]
     Dosage: UNK UNK, QD
     Route: 048
  6. MALIC ACID [Concomitant]
     Dosage: 600 MG, QD
     Route: 048
  7. YASMIN [Suspect]
     Indication: PREMENSTRUAL SYNDROME
     Dosage: UNK
     Dates: start: 20070101, end: 20080101
  8. IBUPROFEN [Concomitant]
  9. SEROQUEL [Concomitant]
     Dosage: 50 MG, QD
     Route: 048
  10. LEXAPRO [Concomitant]
     Dosage: 10 MG, QD
     Route: 048
  11. ULTRA B COMPLEX [Concomitant]
     Dosage: 100 MG, QD
     Route: 048
  12. ASPIRIN [Concomitant]
     Dosage: 81 MG, QD
     Route: 048
  13. DROSPIRENONE AND ETHINYL ESTRADIOL [Suspect]
     Indication: PREMENSTRUAL SYNDROME
     Dosage: UNK
     Dates: start: 20080101, end: 20090804
  14. METOPROLOL TARTRATE [Concomitant]
     Dosage: 25 MG, QD
     Route: 048
  15. CALCIUM CARBONATE [Concomitant]
     Dosage: 600 MG, QD
     Route: 048
  16. ACIDOPHILUS [Concomitant]
     Dosage: 10 MG, QD
     Route: 048
  17. KLOR-CON [Concomitant]
     Dosage: 20 MEQ, QD
     Route: 048

REACTIONS (8)
  - CEREBROVASCULAR ACCIDENT [None]
  - AMNESIA [None]
  - ACTIVITIES OF DAILY LIVING IMPAIRED [None]
  - PAIN [None]
  - IMPAIRED SELF-CARE [None]
  - INJURY [None]
  - INCONTINENCE [None]
  - MIGRAINE [None]
